FAERS Safety Report 23561937 (Version 1)
Quarter: 2024Q1

REPORT INFORMATION
  Report Type: Other
  Country: DE (occurrence: None)
  Receive Date: 20240225
  Receipt Date: 20240225
  Transmission Date: 20240410
  Serious: Yes (Hospitalization)
  Sender: FDA-Public Use
  Company Number: DE-ROCHE-2314968

PATIENT
  Sex: Female

DRUGS (9)
  1. TOCILIZUMAB [Suspect]
     Active Substance: TOCILIZUMAB
     Indication: Juvenile idiopathic arthritis
     Dosage: VISIT T2
     Route: 042
     Dates: start: 201604
  2. TOCILIZUMAB [Suspect]
     Active Substance: TOCILIZUMAB
     Dosage: VISIT T3
     Route: 042
  3. TOCILIZUMAB [Suspect]
     Active Substance: TOCILIZUMAB
     Dosage: VISIT T6, T7, T8, T10,T11,T12, T 13, T14,
     Route: 042
  4. TOCILIZUMAB [Suspect]
     Active Substance: TOCILIZUMAB
     Dosage: VISIT T9
     Route: 042
  5. ENBREL [Concomitant]
     Active Substance: ETANERCEPT
     Dates: start: 20150608
  6. ENBREL [Concomitant]
     Active Substance: ETANERCEPT
     Dates: start: 201506, end: 201512
  7. HUMIRA [Concomitant]
     Active Substance: ADALIMUMAB
     Dates: start: 201601, end: 201604
  8. SULFASALAZINE [Concomitant]
     Active Substance: SULFASALAZINE
     Dates: start: 201409, end: 201507
  9. SULFASALAZINE [Concomitant]
     Active Substance: SULFASALAZINE
     Dates: start: 201409

REACTIONS (2)
  - Bulimia nervosa [Unknown]
  - Depression [Unknown]
